FAERS Safety Report 7056313-0 (Version None)
Quarter: 2010Q4

REPORT INFORMATION
  Report Type: 
  Country: None (occurrence: None)
  Receive Date: 20101021
  Receipt Date: 20101018
  Transmission Date: 20110411
  Serious: Yes (Other)
  Sender: FDA-Public Use
  Company Number: US-TEVA-246150USA

PATIENT

DRUGS (1)
  1. MERCAPTOPURINE [Suspect]
     Route: 048

REACTIONS (1)
  - SELF-INJURIOUS IDEATION [None]
